FAERS Safety Report 9863789 (Version 3)
Quarter: 2014Q1

REPORT INFORMATION
  Report Type: Spontaneous
  Country: GB (occurrence: GB)
  Receive Date: 20140203
  Receipt Date: 20140310
  Transmission Date: 20141002
  Serious: Yes (Other)
  Sender: FDA-Public Use
  Company Number: GB-TEVA-454394ISR

PATIENT
  Age: 43 Year
  Sex: Male

DRUGS (12)
  1. CITALOPRAM [Suspect]
     Dosage: UNK
  2. CLOZARIL [Suspect]
     Indication: SCHIZOPHRENIA
     Dosage: 500 MILLIGRAM DAILY;
     Route: 048
     Dates: start: 1995
  3. CLOZARIL [Suspect]
     Dosage: UNK
     Route: 048
  4. CLOZARIL [Suspect]
     Dosage: 600 MG
     Route: 048
  5. CLOZARIL [Suspect]
     Route: 048
  6. AMISULPRIDE [Suspect]
     Dosage: UNK
  7. ARIPIPRAZOLE [Concomitant]
     Dosage: 5 MICROGRAM DAILY;
     Route: 048
  8. RISPERIDONE [Concomitant]
     Indication: SCHIZOPHRENIA
     Dosage: UNK
     Route: 048
     Dates: start: 20131209
  9. DEPAKOTE [Concomitant]
     Indication: SCHIZOPHRENIA
     Dosage: 750 MILLIGRAM DAILY;
     Route: 048
     Dates: start: 20120810
  10. AMLODIPINE [Concomitant]
     Indication: HYPERTENSION
     Dosage: 10 MILLIGRAM DAILY;
     Route: 048
     Dates: start: 20120810
  11. BENDROFLUMETHIAZIDE [Concomitant]
     Indication: HYPERTENSION
     Dosage: 2.5 MILLIGRAM DAILY;
     Route: 048
     Dates: start: 20120810
  12. PROMETHAZINE [Concomitant]
     Indication: AGITATION
     Dosage: 100 MILLIGRAM DAILY;
     Route: 048
     Dates: start: 20131217

REACTIONS (2)
  - Electrocardiogram QT prolonged [Recovered/Resolved]
  - Electrocardiogram QT shortened [Recovered/Resolved]
